FAERS Safety Report 16686258 (Version 1)
Quarter: 2019Q3

REPORT INFORMATION
  Report Type: Other
  Country: GB (occurrence: GB)
  Receive Date: 20190809
  Receipt Date: 20190809
  Transmission Date: 20191004
  Serious: Yes (Hospitalization)
  Sender: FDA-Public Use
  Company Number: GB-ORCHID HEALTHCARE-2072958

PATIENT
  Age: 12 Year
  Sex: Female

DRUGS (4)
  1. LORAZEPAM. [Concomitant]
     Active Substance: LORAZEPAM
     Route: 065
  2. ARIPIPRAZOLE, TABLET [Suspect]
     Active Substance: ARIPIPRAZOLE
     Indication: PSYCHOTIC DISORDER
     Route: 048
  3. OXCARBAZEPINE. [Interacting]
     Active Substance: OXCARBAZEPINE
     Route: 065
  4. CARBAMAZEPINE. [Concomitant]
     Active Substance: CARBAMAZEPINE
     Route: 065

REACTIONS (4)
  - Drug interaction [Unknown]
  - Antipsychotic drug level below therapeutic [Recovered/Resolved]
  - Contraindicated product administered [Unknown]
  - Petit mal epilepsy [Recovered/Resolved]
